FAERS Safety Report 16569761 (Version 1)
Quarter: 2019Q3

REPORT INFORMATION
  Report Type: Spontaneous
  Country: DE (occurrence: DE)
  Receive Date: 20190715
  Receipt Date: 20190715
  Transmission Date: 20191004
  Serious: Yes (Other)
  Sender: FDA-Public Use
  Company Number: DE-AEGERION PHARMACEUTICAL, INC-AEGR004385

PATIENT

DRUGS (1)
  1. METRELEPTIN [Suspect]
     Active Substance: METRELEPTIN
     Indication: LIPODYSTROPHY ACQUIRED
     Dosage: 2.5 MG, QD
     Route: 058

REACTIONS (4)
  - Condition aggravated [Recovered/Resolved]
  - Intestinal resection [Recovered/Resolved]
  - Gastrointestinal inflammation [Recovered/Resolved]
  - Alpha tumour necrosis factor increased [Recovered/Resolved]
